FAERS Safety Report 16715166 (Version 1)
Quarter: 2019Q3

REPORT INFORMATION
  Report Type: Spontaneous
  Country: US (occurrence: US)
  Receive Date: 20190819
  Receipt Date: 20190819
  Transmission Date: 20191005
  Serious: Yes (Other)
  Sender: FDA-Public Use
  Company Number: US-DRREDDYS-USA/USA/19/0113059

PATIENT
  Age: 10 Month

DRUGS (5)
  1. AMIODARONE HYDROCHLORIDE. [Suspect]
     Active Substance: AMIODARONE HYDROCHLORIDE
     Indication: VENTRICULAR TACHYCARDIA
     Dosage: 10 MG/KG
  2. EVEROLIMUS. [Suspect]
     Active Substance: EVEROLIMUS
     Indication: RHABDOMYOMA
     Dosage: STARTED ONCE PER DAY, 2 DAYS PER WEEK WITH A TARGET TROUGH RANGE OF 8 TO 10 NG/ML
  3. AMIODARONE HYDROCHLORIDE. [Suspect]
     Active Substance: AMIODARONE HYDROCHLORIDE
     Dosage: 5 MG/KG
  4. NADOLOL. [Concomitant]
     Active Substance: NADOLOL
     Indication: VENTRICULAR TACHYCARDIA
     Dosage: (1 MG/KG PER DAY
  5. EVEROLIMUS. [Suspect]
     Active Substance: EVEROLIMUS
     Dosage: STARTED ONCE PER DAY, 2 DAYS PER WEEK WITH A TARGET TROUGH RANGE OF 8 TO 10 NG/ML

REACTIONS (4)
  - Gastroenteritis [Recovered/Resolved]
  - Rash maculo-papular [Unknown]
  - Drug ineffective [Unknown]
  - Pneumonia [Recovered/Resolved]
